FAERS Safety Report 6236290-2 (Version None)
Quarter: 2009Q2

REPORT INFORMATION
  Report Type: 
  Country: None (occurrence: None)
  Receive Date: 20090619
  Receipt Date: 20090612
  Transmission Date: 20091009
  Serious: Yes (Hospitalization)
  Sender: FDA-Public Use
  Company Number: SE-ROCHE-637682

PATIENT
  Age: 38 Year

DRUGS (2)
  1. XENICAL [Suspect]
     Indication: OBESITY
     Route: 065
  2. REDUCTIL [Suspect]
     Indication: OBESITY
     Route: 065

REACTIONS (1)
  - CARDIAC ARREST [None]
